FAERS Safety Report 10082193 (Version 1)
Quarter: 2014Q2

REPORT INFORMATION
  Report Type: Spontaneous
  Country: US (occurrence: US)
  Receive Date: 20140416
  Receipt Date: 20140416
  Transmission Date: 20141212
  Serious: Yes (Other)
  Sender: FDA-Public Use
  Company Number: US-BAYER-2014-054258

PATIENT
  Age: 19 Week
  Sex: 0

DRUGS (1)
  1. MIRENA [Suspect]
     Route: 064

REACTIONS (2)
  - Premature baby [None]
  - Exposure during pregnancy [None]
